FAERS Safety Report 21341256 (Version 1)
Quarter: 2022Q3

REPORT INFORMATION
  Report Type: Spontaneous
  Country: US (occurrence: US)
  Receive Date: 20220916
  Receipt Date: 20220916
  Transmission Date: 20221027
  Serious: Yes (Other)
  Sender: FDA-Public Use
  Company Number: US-ORGANON-O2209USA000800

PATIENT
  Sex: Female

DRUGS (2)
  1. REMERON [Suspect]
     Active Substance: MIRTAZAPINE
     Dosage: UNK
     Route: 048
  2. CAPLYTA [Concomitant]
     Active Substance: LUMATEPERONE
     Dosage: UNK

REACTIONS (1)
  - Serotonin syndrome [Unknown]
